FAERS Safety Report 7815080-0 (Version None)
Quarter: 2011Q4

REPORT INFORMATION
  Report Type: 
  Country: None (occurrence: None)
  Receive Date: 20111014
  Receipt Date: 20111014
  Transmission Date: 20120403
  Serious: Yes (Life-Threatening, Hospitalization)
  Sender: FDA-Public Use
  Company Number: None

PATIENT
  Age: 59 Year
  Sex: Female
  Weight: 72.574 kg

DRUGS (1)
  1. ENBREL [Suspect]

REACTIONS (5)
  - BREAST CANCER FEMALE [None]
  - RESPIRATORY FAILURE [None]
  - MULTI-ORGAN FAILURE [None]
  - RENAL FAILURE [None]
  - CARDIAC FAILURE [None]
